FAERS Safety Report 9325515 (Version 1)
Quarter: 2013Q2

REPORT INFORMATION
  Report Type: Spontaneous
  Country: US (occurrence: None)
  Receive Date: 20130531
  Receipt Date: 20130531
  Transmission Date: 20140414
  Serious: No
  Sender: FDA-Public Use
  Company Number: None

PATIENT
  Age: 16 Year
  Sex: Male
  Weight: 77.11 kg

DRUGS (1)
  1. STRATTERA [Suspect]
     Indication: ATTENTION DEFICIT/HYPERACTIVITY DISORDER
     Dosage: 1 PILL EVERY MORNING
     Route: 048
     Dates: start: 20120101, end: 20130525

REACTIONS (4)
  - Lethargy [None]
  - Mood swings [None]
  - Insomnia [None]
  - Weight decreased [None]
